FAERS Safety Report 8047077-2 (Version None)
Quarter: 2012Q1

REPORT INFORMATION
  Report Type: 
  Country: None (occurrence: None)
  Receive Date: 20120116
  Receipt Date: 20120106
  Transmission Date: 20120608
  Serious: Yes (Hospitalization)
  Sender: FDA-Public Use
  Company Number: FR-ELI_LILLY_AND_COMPANY-FR201111008076

PATIENT
  Sex: Male

DRUGS (4)
  1. OLANZAPINE [Suspect]
     Dosage: 405 MG, EVERY 2 WEEKS
     Route: 030
     Dates: start: 20110816
  2. TRIMEPRAZINE TARTRATE [Concomitant]
     Dosage: 20 DROPS IF NEEDED
     Dates: start: 20110713
  3. CLONAZEPAM [Concomitant]
     Dosage: UNK
     Dates: start: 20110820
  4. LOXAPINE HCL [Concomitant]
     Dosage: 50 DROPS IF NEEDED
     Dates: start: 20110713

REACTIONS (11)
  - AGGRESSION [None]
  - PRODUCT RECONSTITUTION ISSUE [None]
  - ASTHENIA [None]
  - CONFUSIONAL STATE [None]
  - IMPATIENCE [None]
  - DIZZINESS [None]
  - DYSARTHRIA [None]
  - OVERDOSE [None]
  - SEDATION [None]
  - HYPOTENSION [None]
  - DRUG DOSE OMISSION [None]
